FAERS Safety Report 13177778 (Version 1)
Quarter: 2017Q1

REPORT INFORMATION
  Report Type: Spontaneous
  Country: CN (occurrence: CN)
  Receive Date: 20170201
  Receipt Date: 20170201
  Transmission Date: 20170428
  Serious: Yes (Hospitalization, Other)
  Sender: FDA-Public Use
  Company Number: CN-BRISTOL-MYERS SQUIBB COMPANY-BMS-2017-006124

PATIENT
  Sex: Female

DRUGS (1)
  1. SPRYCEL [Suspect]
     Active Substance: DASATINIB
     Indication: PRODUCT USED FOR UNKNOWN INDICATION
     Dosage: 50 MG, BID
     Route: 048
     Dates: start: 20160908

REACTIONS (6)
  - Stem cell transplant [Unknown]
  - Immune system disorder [Unknown]
  - Gastroenteritis radiation [Unknown]
  - Capillary leak syndrome [Unknown]
  - Asthenia [Unknown]
  - Blast crisis in myelogenous leukaemia [Unknown]
